FAERS Safety Report 7582032-8 (Version None)
Quarter: 2011Q2

REPORT INFORMATION
  Report Type: 
  Country: None (occurrence: None)
  Receive Date: 20110630
  Receipt Date: 20110623
  Transmission Date: 20111010
  Serious: No
  Sender: FDA-Public Use
  Company Number: US-BIOGENIDEC-2011BI010750

PATIENT
  Age: 56 Year
  Sex: Female

DRUGS (1)
  1. TYSABRI [Suspect]
     Indication: MULTIPLE SCLEROSIS
     Route: 042
     Dates: start: 20101021

REACTIONS (6)
  - PRURITUS [None]
  - RASH [None]
  - HEADACHE [None]
  - DIZZINESS [None]
  - MEMORY IMPAIRMENT [None]
  - BRADYPHRENIA [None]
